FAERS Safety Report 6174714-X (Version None)
Quarter: 2009Q2

REPORT INFORMATION
  Report Type: 
  Country: None (occurrence: None)
  Receive Date: 20090430
  Receipt Date: 20080826
  Transmission Date: 20091009
  Serious: No
  Sender: FDA-Public Use
  Company Number: US-ASTRAZENECA-2008UW17523

PATIENT
  Age: 54 Year
  Sex: Female
  Weight: 55.3 kg

DRUGS (2)
  1. NEXIUM [Suspect]
     Indication: REFLUX OESOPHAGITIS
     Route: 048
     Dates: start: 20080601
  2. LEVOTHYROXINE SODIUM [Concomitant]

REACTIONS (1)
  - ANXIETY [None]
